FAERS Safety Report 12202013 (Version 1)
Quarter: 2016Q1

REPORT INFORMATION
  Report Type: Report from Study
  Country: US (occurrence: US)
  Receive Date: 20160322
  Receipt Date: 20160322
  Transmission Date: 20160526
  Serious: Yes (Hospitalization)
  Sender: FDA-Public Use
  Company Number: PHEH2016US006666

PATIENT
  Sex: Female

DRUGS (1)
  1. GILENYA [Suspect]
     Active Substance: FINGOLIMOD HYDROCHLORIDE
     Indication: MULTIPLE SCLEROSIS
     Dosage: 0.5 MG, QD
     Route: 048

REACTIONS (7)
  - Pyrexia [Unknown]
  - Cough [Unknown]
  - Asthenia [Unknown]
  - Pulmonary oedema [Unknown]
  - Bronchitis [Unknown]
  - Somnolence [Unknown]
  - Chest discomfort [Unknown]
